FAERS Safety Report 8835678 (Version 1)
Quarter: 2012Q4

REPORT INFORMATION
  Report Type: 
  Country: TR (occurrence: TR)
  Receive Date: 20121011
  Receipt Date: 20121011
  Transmission Date: 20130627
  Serious: No
  Sender: FDA-Public Use
  Company Number: TR-JNJFOC-20121000358

PATIENT
  Age: 36 Year
  Sex: Male

DRUGS (2)
  1. REMICADE [Suspect]
     Indication: ANKYLOSING SPONDYLITIS
     Dosage: 9th infusion was delayed by physician
     Route: 042
     Dates: start: 2011, end: 20120820
  2. REMICADE [Suspect]
     Indication: ANKYLOSING SPONDYLITIS
     Dosage: 9th infusion
     Route: 042
     Dates: start: 20120924

REACTIONS (1)
  - Herpes zoster [Recovered/Resolved]
